FAERS Safety Report 6802592-1 (Version None)
Quarter: 2010Q2

REPORT INFORMATION
  Report Type: 
  Country: None (occurrence: None)
  Receive Date: 20100628
  Receipt Date: 20100621
  Transmission Date: 20101027
  Serious: Yes (Hospitalization, Other)
  Sender: FDA-Public Use
  Company Number: US-BAYER-200921435NA

PATIENT
  Age: 44 Year
  Sex: Female

DRUGS (2)
  1. BETASERON [Suspect]
     Indication: MULTIPLE SCLEROSIS
     Dosage: TOTAL DAILY DOSE: 8 MIU
     Route: 058
     Dates: start: 20090505, end: 20090608
  2. BETASERON [Suspect]
     Dosage: TOTAL DAILY DOSE: 8 MIU
     Route: 058
     Dates: start: 20090708

REACTIONS (15)
  - BLISTER [None]
  - BLOOD COUNT ABNORMAL [None]
  - BRONCHITIS [None]
  - CHOLELITHIASIS [None]
  - GASTRIC ULCER [None]
  - INJECTION SITE ERYTHEMA [None]
  - INJECTION SITE REACTION [None]
  - INJECTION SITE SCAB [None]
  - INJECTION SITE VESICLES [None]
  - KNEE ARTHROPLASTY [None]
  - PAIN [None]
  - PHLEBITIS [None]
  - PYREXIA [None]
  - STAPHYLOCOCCAL INFECTION [None]
  - SWELLING [None]
